FAERS Safety Report 4843696-2 (Version None)
Quarter: 2005Q4

REPORT INFORMATION
  Report Type: 
  Country: None (occurrence: None)
  Receive Date: 20051202
  Receipt Date: 20030313
  Transmission Date: 20060501
  Serious: Yes (Death)
  Sender: FDA-Public Use
  Company Number: PHBS2003JP02892

PATIENT
  Age: 63 Year
  Sex: Female

DRUGS (2)
  1. VOLTAREN [Suspect]
     Indication: PAIN
     Dosage: 50 MG/DAY
     Route: 054
     Dates: start: 20021221, end: 20021222
  2. KAKKON-TO [Concomitant]
     Route: 048
     Dates: start: 20021221, end: 20021222

REACTIONS (3)
  - PAIN IN EXTREMITY [None]
  - RHABDOMYOLYSIS [None]
  - VIRAL MYOCARDITIS [None]
